FAERS Safety Report 12189406 (Version 1)
Quarter: 2016Q1

REPORT INFORMATION
  Report Type: Spontaneous
  Country: US (occurrence: US)
  Receive Date: 20160317
  Receipt Date: 20160317
  Transmission Date: 20160526
  Serious: Yes (Hospitalization)
  Sender: FDA-Public Use
  Company Number: US-HOSPIRA-3206451

PATIENT
  Age: 29 Year
  Sex: Male

DRUGS (1)
  1. EPINEPHRINE. [Suspect]
     Active Substance: EPINEPHRINE
     Indication: PRODUCT USED FOR UNKNOWN INDICATION
     Dosage: 5.0 C.C.
     Route: 030
     Dates: start: 19450411

REACTIONS (6)
  - Extrasystoles [Recovered/Resolved]
  - Ventricular fibrillation [Recovered/Resolved]
  - Myocardial infarction [Recovered/Resolved]
  - Overdose [Recovered/Resolved]
  - Incorrect dose administered [Recovered/Resolved]
  - Arrhythmia [Recovered/Resolved]

NARRATIVE: CASE EVENT DATE: 19450411
